FAERS Safety Report 5390368-4 (Version None)
Quarter: 2007Q3

REPORT INFORMATION
  Report Type: 
  Country: None (occurrence: None)
  Receive Date: 20070718
  Receipt Date: 20070703
  Transmission Date: 20080115
  Serious: Yes (Hospitalization)
  Sender: FDA-Public Use
  Company Number: FR-PFIZER INC-2007055203

PATIENT
  Age: 84 Year
  Sex: Female

DRUGS (10)
  1. LYRICA [Suspect]
     Indication: NEURALGIA
     Route: 048
     Dates: start: 20070407, end: 20070521
  2. CLONIDINE [Concomitant]
  3. ENALAPRIL MALEATE [Concomitant]
  4. INDAPAMIDE [Concomitant]
  5. BISOPROLOL [Concomitant]
  6. IRBESARTAN [Concomitant]
  7. CLOPIDOGREL [Concomitant]
  8. ZOPICLONE [Concomitant]
  9. PRAVASTATIN [Concomitant]
  10. OMEPRAZOLE [Concomitant]

REACTIONS (2)
  - CONDITION AGGRAVATED [None]
  - HYPERTENSION [None]
